FAERS Safety Report 9656783 (Version 2)
Quarter: 2014Q3

REPORT INFORMATION
  Report Type: Spontaneous
  Country: GB (occurrence: GB)
  Receive Date: 20131030
  Receipt Date: 20140722
  Transmission Date: 20150326
  Serious: Yes (Other)
  Sender: FDA-Public Use
  Company Number: GB-BRISTOL-MYERS SQUIBB COMPANY-19612332

PATIENT
  Age: 44 Year
  Sex: Male
  Weight: 101.6 kg

DRUGS (3)
  1. SERTRALINE [Concomitant]
     Active Substance: SERTRALINE HYDROCHLORIDE
     Indication: DEPRESSION
  2. ASPIRIN. [Concomitant]
     Active Substance: ASPIRIN
     Indication: CARDIAC DISORDER
  3. ABILIFY [Suspect]
     Active Substance: ARIPIPRAZOLE
     Indication: PSYCHOTIC DISORDER
     Dosage: DOSE:15MG
     Dates: start: 20130609, end: 20130802

REACTIONS (9)
  - Dizziness [Recovering/Resolving]
  - Musculoskeletal stiffness [Recovering/Resolving]
  - Libido increased [Recovering/Resolving]
  - Activities of daily living impaired [Recovering/Resolving]
  - Cardiac disorder [Recovering/Resolving]
  - Hyperhidrosis [Recovering/Resolving]
  - Tremor [Recovering/Resolving]
  - Feeling abnormal [Recovering/Resolving]
  - Off label use [Unknown]

NARRATIVE: CASE EVENT DATE: 201306
